FAERS Safety Report 4669083-8 (Version None)
Quarter: 2005Q2

REPORT INFORMATION
  Report Type: 
  Country: None (occurrence: None)
  Receive Date: 20050523
  Receipt Date: 20050121
  Transmission Date: 20051028
  Serious: Yes (Hospitalization)
  Sender: FDA-Public Use
  Company Number: PHRM2005FR00640

PATIENT
  Age: 74 Year
  Sex: Female
  Weight: 63 kg

DRUGS (3)
  1. SOLUPRED [Suspect]
     Indication: MULTIPLE MYELOMA
     Route: 048
     Dates: start: 20040220, end: 20041220
  2. ANTIBIOTICS [Suspect]
  3. ZOMETA [Suspect]
     Indication: MULTIPLE MYELOMA
     Dosage: 4 MG, QMO
     Route: 042
     Dates: start: 20040220, end: 20041220

REACTIONS (2)
  - OSTEONECROSIS [None]
  - WOUND DEBRIDEMENT [None]
